FAERS Safety Report 5942719-7 (Version None)
Quarter: 2008Q4

REPORT INFORMATION
  Report Type: 
  Country: None (occurrence: None)
  Receive Date: 20081106
  Receipt Date: 20081025
  Transmission Date: 20090506
  Serious: Yes (Other)
  Sender: FDA-Public Use
  Company Number: CH-JNJFOC-20080902973

PATIENT
  Age: 28 Year
  Sex: Female

DRUGS (5)
  1. REMICADE [Suspect]
     Route: 042
  2. REMICADE [Suspect]
     Indication: COLITIS ULCERATIVE
     Route: 042
  3. ESOMEPRAZOLE MAGNESIUM [Concomitant]
  4. SALOFALK (5-ASA) [Concomitant]
  5. LEUPROLIDE ACETATE [Concomitant]

REACTIONS (2)
  - RENAL TUBERCULOSIS [None]
  - THERAPEUTIC RESPONSE DECREASED [None]
